FAERS Safety Report 5316153-7 (Version None)
Quarter: 2007Q2

REPORT INFORMATION
  Report Type: 
  Country: None (occurrence: None)
  Receive Date: 20070503
  Receipt Date: 20070423
  Transmission Date: 20071010
  Serious: Yes (Other)
  Sender: FDA-Public Use
  Company Number: DE-PFIZER INC-2007029258

PATIENT
  Sex: Female
  Weight: 60 kg

DRUGS (2)
  1. DEPO-PROGEVERA [Suspect]
     Indication: CONTRACEPTION
     Dosage: FREQ:FIRST INJECTION
     Route: 030
     Dates: start: 20060131, end: 20060131
  2. DEPO-PROGEVERA [Suspect]
     Dosage: FREQ:LAST INJECTION
     Route: 030
     Dates: start: 20070207, end: 20070207

REACTIONS (5)
  - ABORTION MISSED [None]
  - DRUG EXPOSURE DURING PREGNANCY [None]
  - DRUG INEFFECTIVE [None]
  - PREGNANCY WITH INJECTABLE CONTRACEPTIVE [None]
  - UNINTENDED PREGNANCY [None]
